FAERS Safety Report 5316958-2 (Version None)
Quarter: 2007Q2

REPORT INFORMATION
  Report Type: 
  Country: None (occurrence: None)
  Receive Date: 20070504
  Receipt Date: 20070426
  Transmission Date: 20071010
  Serious: Yes (Life-Threatening)
  Sender: FDA-Public Use
  Company Number: FR-BRISTOL-MYERS SQUIBB COMPANY-13724729

PATIENT
  Age: 74 Year
  Sex: Male

DRUGS (4)
  1. ENDOXAN [Suspect]
     Indication: MULTIPLE MYELOMA
     Route: 048
     Dates: start: 20060401, end: 20060601
  2. ALKERAN [Suspect]
     Indication: MULTIPLE MYELOMA
     Dates: start: 20040401, end: 20040801
  3. THALIDOMIDE [Suspect]
     Indication: MULTIPLE MYELOMA
     Route: 048
     Dates: start: 20041101, end: 20050101
  4. VELCADE [Suspect]
     Indication: MULTIPLE MYELOMA
     Route: 042
     Dates: start: 20050901, end: 20060201

REACTIONS (2)
  - CHROMOSOME ANALYSIS ABNORMAL [None]
  - MYELOCYTOSIS [None]
